FAERS Safety Report 17356389 (Version 4)
Quarter: 2021Q1

REPORT INFORMATION
  Report Type: Spontaneous
  Country: US (occurrence: US)
  Receive Date: 20200131
  Receipt Date: 20210315
  Transmission Date: 20210419
  Serious: Yes (Other)
  Sender: FDA-Public Use
  Company Number: US-PFIZER INC-2018094577

PATIENT
  Age: 44 Year
  Sex: Male

DRUGS (3)
  1. LYRICA [Suspect]
     Active Substance: PREGABALIN
     Indication: HYPOAESTHESIA
  2. LYRICA [Suspect]
     Active Substance: PREGABALIN
     Indication: PARAESTHESIA
  3. LYRICA [Suspect]
     Active Substance: PREGABALIN
     Indication: PAIN
     Dosage: 150 MG, UNK

REACTIONS (5)
  - Memory impairment [Unknown]
  - Cerebrovascular accident [Unknown]
  - Speech disorder [Unknown]
  - Pain [Unknown]
  - Stress [Unknown]
